FAERS Safety Report 8214238-9 (Version None)
Quarter: 2012Q1

REPORT INFORMATION
  Report Type: 
  Country: None (occurrence: None)
  Receive Date: 20120315
  Receipt Date: 20120315
  Transmission Date: 20120608
  Serious: No
  Sender: FDA-Public Use
  Company Number: None

PATIENT
  Sex: Male

DRUGS (1)
  1. EQUATE DRY SCALP PYRITHIONE ZINC DANDRUFF SHAMPOO [Suspect]

REACTIONS (5)
  - SCAR [None]
  - PRURITUS [None]
  - HAEMORRHAGE [None]
  - RASH MACULAR [None]
  - MASS [None]
